FAERS Safety Report 9688171 (Version 1)
Quarter: 2013Q4

REPORT INFORMATION
  Report Type: Spontaneous
  Country: CA (occurrence: CA)
  Receive Date: 20131114
  Receipt Date: 20131114
  Transmission Date: 20140711
  Serious: Yes (Hospitalization)
  Sender: FDA-Public Use
  Company Number: CA-ASTRAZENECA-2013SE81503

PATIENT
  Age: 48 Year
  Sex: Female
  Weight: 73 kg

DRUGS (3)
  1. NEXIUM [Suspect]
     Route: 048
  2. ATASOL [Concomitant]
     Dosage: ATASOL 8, UNKNOWN FREQUENCY
  3. METHOTREXATE [Concomitant]

REACTIONS (3)
  - Hypocalcaemia [Recovered/Resolved]
  - Tetany [Recovered/Resolved]
  - Hypomagnesaemia [Recovered/Resolved]
